FAERS Safety Report 6006580-7 (Version None)
Quarter: 2008Q4

REPORT INFORMATION
  Report Type: 
  Country: None (occurrence: None)
  Receive Date: 20081217
  Receipt Date: 20081210
  Transmission Date: 20090506
  Serious: Yes (Hospitalization)
  Sender: FDA-Public Use
  Company Number: DE-BRISTOL-MYERS SQUIBB COMPANY-14422992

PATIENT
  Age: 24 Year
  Sex: Female
  Weight: 100 kg

DRUGS (9)
  1. ORENCIA [Suspect]
     Indication: SERONEGATIVE ARTHRITIS
     Dosage: INFUSION DATES: 07-MAY-08,02-JUN-08,30-JUN-08 AND 15-SEP-08.
     Route: 042
     Dates: start: 20080507, end: 20080507
  2. PREDNISOLONE [Concomitant]
  3. MORPHINE SULFATE [Concomitant]
  4. MORPHINE [Concomitant]
  5. NOVAMINSULFON [Concomitant]
  6. FUROSEMIDE [Concomitant]
  7. HYDROCHLOROTHIAZIDE [Concomitant]
     Indication: THERAPEUTIC ASPIRATION
  8. LYRICA [Concomitant]
  9. NEUROLEPTICS [Concomitant]

REACTIONS (2)
  - DISSOCIATIVE DISORDER [None]
  - EPILEPSY [None]
